FAERS Safety Report 7775512-3 (Version None)
Quarter: 2011Q3

REPORT INFORMATION
  Report Type: 
  Country: None (occurrence: None)
  Receive Date: 20110923
  Receipt Date: 20101117
  Transmission Date: 20111222
  Serious: Yes (Hospitalization)
  Sender: FDA-Public Use
  Company Number: GB-ROCHE-744480

PATIENT

DRUGS (3)
  1. MYCOPHENOLATE MOFETIL [Suspect]
     Route: 065
  2. DACLIZUMAB [Suspect]
     Route: 065
  3. TACROLIMUS [Suspect]
     Indication: LIVER TRANSPLANT
     Route: 065

REACTIONS (3)
  - TRANSPLANT REJECTION [None]
  - LIVER FUNCTION TEST ABNORMAL [None]
  - DRUG ADMINISTRATION ERROR [None]
